FAERS Safety Report 15811534 (Version 1)
Quarter: 2019Q1

REPORT INFORMATION
  Report Type: Spontaneous
  Country: US (occurrence: US)
  Receive Date: 20190104
  Receipt Date: 20190104
  Transmission Date: 20190417
  Serious: Yes (Hospitalization)
  Sender: FDA-Public Use
  Company Number: None

PATIENT

DRUGS (2)
  1. IVABRADINE [Suspect]
     Active Substance: IVABRADINE
  2. IVERMECTIN. [Suspect]
     Active Substance: IVERMECTIN

REACTIONS (3)
  - Product name confusion [None]
  - Intercepted product administration error [None]
  - Product label on wrong product [None]
